FAERS Safety Report 6375622-1 (Version None)
Quarter: 2009Q3

REPORT INFORMATION
  Report Type: 
  Country: None (occurrence: None)
  Receive Date: 20090921
  Receipt Date: 20090904
  Transmission Date: 20100115
  Serious: Yes (Other)
  Sender: FDA-Public Use
  Company Number: ACO_00593_2009

PATIENT
  Sex: Male
  Weight: 87.0906 kg

DRUGS (9)
  1. ZANAFLEX [Suspect]
     Indication: FIBROMYALGIA
     Dosage: (4 MG BID ORAL)
     Route: 048
     Dates: start: 19960101
  2. OPANA [Suspect]
     Indication: PAIN
     Dosage: SEE IMAGE
     Route: 048
     Dates: start: 20090812, end: 20090824
  3. OPANA [Suspect]
     Indication: PAIN
     Dosage: SEE IMAGE
     Route: 048
     Dates: start: 20090824, end: 20090825
  4. OPANA [Suspect]
     Indication: PAIN
     Dosage: (80 MG BID ORAL)
     Route: 048
     Dates: start: 20090825, end: 20090827
  5. ACETAMINOPHEN AND OXYCODONE HCL [Suspect]
     Indication: BREAKTHROUGH PAIN
     Dosage: SEE IMAGE
     Route: 048
     Dates: start: 19960101
  6. NEURONTIN [Suspect]
     Indication: FIBROMYALGIA
     Dosage: (300 MG, ON AN INCREASING DOSE EVERY 3 DAYS ORAL)
     Route: 048
     Dates: start: 20090825
  7. AMBIEN [Suspect]
     Indication: DRUG USE FOR UNKNOWN INDICATION
     Dosage: (10 MG QD, AT NIGHT ORAL)
     Route: 048
     Dates: start: 19990101
  8. SINGLET /00446801/ (NOT SPECIFIED) [Suspect]
     Indication: SEASONAL ALLERGY
     Dosage: (1 DF QD ORAL)
     Route: 048
     Dates: start: 19990101
  9. KLONOPIN [Suspect]
     Indication: DRUG USE FOR UNKNOWN INDICATION
     Dosage: (1 MG TID ORAL)
     Route: 048
     Dates: start: 20040101

REACTIONS (11)
  - CONFUSIONAL STATE [None]
  - CONTUSION [None]
  - DRUG INEFFECTIVE [None]
  - FACIAL BONES FRACTURE [None]
  - HAEMOPTYSIS [None]
  - HEADACHE [None]
  - LACERATION [None]
  - LOSS OF CONSCIOUSNESS [None]
  - NAUSEA [None]
  - PERIORBITAL HAEMATOMA [None]
  - ROAD TRAFFIC ACCIDENT [None]
